FAERS Safety Report 5665104-4 (Version None)
Quarter: 2008Q1

REPORT INFORMATION
  Report Type: 
  Country: None (occurrence: None)
  Receive Date: 20080314
  Receipt Date: 20040729
  Transmission Date: 20080703
  Serious: No
  Sender: FDA-Public Use
  Company Number: US-ABBOTT-04P-163-0268421-00

PATIENT
  Sex: Female
  Weight: 101.24 kg

DRUGS (7)
  1. HUMIRA [Suspect]
     Indication: RHEUMATOID ARTHRITIS
     Route: 058
     Dates: start: 20030417, end: 20040701
  2. NPH ILETIN II [Concomitant]
     Indication: DIABETES MELLITUS
     Route: 058
  3. REGULAR INSULIN [Concomitant]
     Indication: DIABETES MELLITUS
     Route: 058
  4. METHOTREXATE [Concomitant]
     Indication: RHEUMATOID ARTHRITIS
     Route: 048
     Dates: start: 20010101
  5. ZOLPIDEM TARTRATE [Concomitant]
     Indication: DRUG USE FOR UNKNOWN INDICATION
     Route: 048
  6. VICODIN [Concomitant]
     Indication: DRUG USE FOR UNKNOWN INDICATION
     Route: 048
  7. BENECAR [Concomitant]
     Route: 048
     Dates: start: 20030101

REACTIONS (8)
  - CONDITION AGGRAVATED [None]
  - DRUG EFFECT DECREASED [None]
  - FLUID RETENTION [None]
  - INSOMNIA [None]
  - PAIN [None]
  - PAIN IN EXTREMITY [None]
  - RED BLOOD CELL SEDIMENTATION RATE INCREASED [None]
  - WEIGHT INCREASED [None]
